FAERS Safety Report 5082892-9 (Version None)
Quarter: 2006Q3

REPORT INFORMATION
  Report Type: 
  Country: None (occurrence: None)
  Receive Date: 20060817
  Receipt Date: 20060629
  Transmission Date: 20061208
  Serious: Yes (Hospitalization)
  Sender: FDA-Public Use
  Company Number: FR-BOEHRINGER INGELHEIM GMBH, GERMANY-2006-FF-00554PF

PATIENT
  Sex: Male
  Weight: 54 kg

DRUGS (6)
  1. SPIRIVA [Suspect]
     Indication: CHRONIC OBSTRUCTIVE PULMONARY DISEASE
     Route: 055
     Dates: start: 20060521, end: 20060619
  2. FORADIL [Concomitant]
  3. BRICANYL [Concomitant]
  4. MIFLASONE [Concomitant]
  5. OMEPRAZOLE [Concomitant]
  6. LASILIX [Concomitant]

REACTIONS (1)
  - DERMATITIS ALLERGIC [None]
